FAERS Safety Report 19076124 (Version 2)
Quarter: 2024Q1

REPORT INFORMATION
  Report Type: Spontaneous
  Country: NO (occurrence: NO)
  Receive Date: 20210330
  Receipt Date: 20240308
  Transmission Date: 20240409
  Serious: Yes (Congenital Anomaly)
  Sender: FDA-Public Use
  Company Number: NO-CELLTRION INC.-2021NO004012

PATIENT

DRUGS (6)
  1. INFLIXIMAB [Suspect]
     Active Substance: INFLIXIMAB
     Dosage: 300 MG, EVERY 8 WEEK
     Route: 064
     Dates: start: 201812
  2. PURINETHOL [Suspect]
     Active Substance: MERCAPTOPURINE
     Indication: Colitis ulcerative
     Dosage: 50 MG, DAILY; L01BB02 - MERKAPTOPURIN
     Route: 064
     Dates: start: 20181217, end: 201912
  3. LANTUS [Concomitant]
     Active Substance: INSULIN GLARGINE
     Indication: Type 1 diabetes mellitus
     Dosage: 52 UNITS IN THE MORNING; 52 DF EVERY 24 HOUR; A10AE04 - INSULIN GLARGIN
     Route: 064
     Dates: start: 2008
  4. NOVORAPID [Concomitant]
     Active Substance: INSULIN ASPART
     Indication: Type 1 diabetes mellitus
     Dosage: 4-6 IE IN RELATION TO MEALS; A10AB05 - INSULIN ASPART
     Route: 064
     Dates: start: 2008
  5. ASACOL [Concomitant]
     Active Substance: MESALAMINE
     Indication: Colitis ulcerative
     Dosage: 500 MG, EVERY 12 HOUR; A07EC02 - MESALAZIN
     Route: 064
     Dates: start: 2014
  6. ASACOL [Concomitant]
     Active Substance: MESALAMINE
     Dosage: 2400 MG, EVERY 12 HOUR
     Route: 064
     Dates: start: 2014

REACTIONS (7)
  - Bicuspid aortic valve [Unknown]
  - Congenital foot malformation [Unknown]
  - Encephalocele [Unknown]
  - Ventricular septal defect [Unknown]
  - Double outlet right ventricle [Unknown]
  - Pulmonary sequestration [Unknown]
  - Foetal exposure during pregnancy [Unknown]

NARRATIVE: CASE EVENT DATE: 20200814
